FAERS Safety Report 4743543-3 (Version None)
Quarter: 2005Q3

REPORT INFORMATION
  Report Type: 
  Country: None (occurrence: None)
  Receive Date: 20050812
  Receipt Date: 20050803
  Transmission Date: 20060218
  Serious: Yes (Hospitalization)
  Sender: FDA-Public Use
  Company Number: US-JNJFOC-20050504828

PATIENT
  Age: 73 Year
  Sex: Male
  Weight: 53.98 kg

DRUGS (5)
  1. REMICADE [Suspect]
     Route: 042
  2. TYLOX [Concomitant]
  3. TYLOX [Concomitant]
  4. PREDNISONE [Concomitant]
  5. ATIVAN [Concomitant]

REACTIONS (4)
  - CONSTIPATION [None]
  - DECREASED APPETITE [None]
  - INTESTINAL OBSTRUCTION [None]
  - WEIGHT DECREASED [None]
